FAERS Safety Report 11169639 (Version 1)
Quarter: 2015Q2

REPORT INFORMATION
  Report Type: Spontaneous
  Country: DO (occurrence: DO)
  Receive Date: 20150605
  Receipt Date: 20150605
  Transmission Date: 20150821
  Serious: Yes (Other)
  Sender: FDA-Public Use
  Company Number: DO-GE HEALTHCARE MEDICAL DIAGNOSTICS-VISP-PR-1505S-0202

PATIENT
  Age: 45 Year
  Sex: Male

DRUGS (2)
  1. VISIPAQUE [Suspect]
     Active Substance: IODIXANOL
     Indication: HEADACHE
     Route: 042
     Dates: start: 20150424, end: 20150424
  2. VISIPAQUE [Suspect]
     Active Substance: IODIXANOL
     Indication: DIAGNOSTIC PROCEDURE

REACTIONS (6)
  - Platelet count decreased [Unknown]
  - Liver disorder [Unknown]
  - Hypoaesthesia oral [Recovered/Resolved]
  - Tinnitus [Recovered/Resolved]
  - Hypertension [Recovered/Resolved]
  - Dizziness [Recovered/Resolved]

NARRATIVE: CASE EVENT DATE: 20150424
